FAERS Safety Report 8518310-5 (Version None)
Quarter: 2012Q3

REPORT INFORMATION
  Report Type: 
  Country: None (occurrence: None)
  Receive Date: 20120718
  Receipt Date: 20120120
  Transmission Date: 20120928
  Serious: No
  Sender: FDA-Public Use
  Company Number: US-BRISTOL-MYERS SQUIBB COMPANY-16361230

PATIENT
  Age: 48 Year
  Sex: Female
  Weight: 54 kg

DRUGS (2)
  1. METFORMIN HCL [Concomitant]
     Indication: DIABETES MELLITUS
  2. COUMADIN [Suspect]
     Indication: ATRIAL SEPTAL DEFECT
     Dates: end: 20120119

REACTIONS (1)
  - INTERNATIONAL NORMALISED RATIO FLUCTUATION [None]
